FAERS Safety Report 10662547 (Version 1)
Quarter: 2014Q4

REPORT INFORMATION
  Report Type: Spontaneous
  Country: US (occurrence: None)
  Receive Date: 20141217
  Receipt Date: 20141217
  Transmission Date: 20150529
  Serious: Yes (Hospitalization)
  Sender: FDA-Public Use
  Company Number: None

PATIENT
  Age: 36 Year
  Sex: Female
  Weight: 108.86 kg

DRUGS (1)
  1. CIPROFLOXACIN. [Suspect]
     Active Substance: CIPROFLOXACIN
     Indication: SINUSITIS
     Dates: start: 20140730, end: 20140808

REACTIONS (5)
  - Anxiety [None]
  - Depression [None]
  - Insomnia [None]
  - Mood swings [None]
  - Psychotic disorder [None]

NARRATIVE: CASE EVENT DATE: 20140830
